FAERS Safety Report 20617385 (Version 1)
Quarter: 2022Q1

REPORT INFORMATION
  Report Type: Spontaneous
  Country: US (occurrence: None)
  Receive Date: 20220320
  Receipt Date: 20220320
  Transmission Date: 20220423
  Serious: Yes (Other)
  Sender: FDA-Public Use
  Company Number: None

PATIENT
  Age: 71 Year
  Sex: Female
  Weight: 54.43 kg

DRUGS (5)
  1. DEVICE [Suspect]
     Active Substance: DEVICE
  2. GADAVIST [Suspect]
     Active Substance: GADOBUTROL
  3. LORAZEPAM [Concomitant]
     Active Substance: LORAZEPAM
  4. GABAPENTIN [Concomitant]
     Active Substance: GABAPENTIN
  5. ComPatch HR [Concomitant]

REACTIONS (12)
  - Nausea [None]
  - Headache [None]
  - Tinnitus [None]
  - Ear pain [None]
  - Fatigue [None]
  - Asthenia [None]
  - Joint stiffness [None]
  - Dry eye [None]
  - Dysgeusia [None]
  - Bone pain [None]
  - Contrast media allergy [None]
  - Documented hypersensitivity to administered product [None]

NARRATIVE: CASE EVENT DATE: 20220308
